FAERS Safety Report 5464461-1 (Version None)
Quarter: 2007Q3

REPORT INFORMATION
  Report Type: 
  Country: None (occurrence: None)
  Receive Date: 20070921
  Receipt Date: 20070917
  Transmission Date: 20080115
  Serious: Yes (Death)
  Sender: FDA-Public Use
  Company Number: AU-AVENTIS-200717984GDDC

PATIENT
  Age: 80 Year
  Sex: Female

DRUGS (8)
  1. ARAVA [Suspect]
     Indication: RHEUMATOID ARTHRITIS
     Route: 048
     Dates: start: 20060406
  2. PREDNISOLONE [Concomitant]
     Dosage: DOSE: UNK
  3. COVERSYL PLUS [Concomitant]
  4. ENDEP [Concomitant]
  5. FOSAMAX [Concomitant]
  6. NEXIUM [Concomitant]
  7. TRANSDERM-NITRO [Concomitant]
  8. PRESSIN [Concomitant]

REACTIONS (2)
  - MYOCARDIAL INFARCTION [None]
  - SUDDEN DEATH [None]
